FAERS Safety Report 8329645-3 (Version None)
Quarter: 2012Q2

REPORT INFORMATION
  Report Type: 
  Country: None (occurrence: None)
  Receive Date: 20120502
  Receipt Date: 20091001
  Transmission Date: 20120825
  Serious: No
  Sender: FDA-Public Use
  Company Number: US-TEVA-2009011039

PATIENT
  Sex: Female
  Weight: 74.91 kg

DRUGS (21)
  1. HYOSCYAMINE [Concomitant]
  2. IBUPROFEN [Concomitant]
  3. KADIAN [Concomitant]
  4. SEROQUEL [Concomitant]
  5. MECLIZINE [Concomitant]
  6. XANAX [Concomitant]
  7. PERCOCET [Concomitant]
  8. VITAMIN B-12 [Concomitant]
  9. NUVIGIL [Suspect]
     Indication: FATIGUE
     Dosage: 150 MILLIGRAM;
     Route: 048
     Dates: start: 20090801
  10. BETASERON [Concomitant]
  11. SOMA [Concomitant]
  12. RANITIDINE [Concomitant]
  13. LORTAB [Concomitant]
  14. MULTI-VITAMIN [Concomitant]
  15. ZICAM [Concomitant]
  16. DIAZEPAM [Concomitant]
  17. REGLAN [Concomitant]
  18. AMOXICILLIN [Concomitant]
  19. TIZANIDINE HCL [Concomitant]
  20. MOBIC [Concomitant]
  21. NEURONTIN [Concomitant]

REACTIONS (1)
  - DRUG TOLERANCE [None]
